FAERS Safety Report 14343681 (Version 2)
Quarter: 2018Q1

REPORT INFORMATION
  Report Type: Spontaneous
  Country: US (occurrence: US)
  Receive Date: 20180102
  Receipt Date: 20180129
  Transmission Date: 20180509
  Serious: No
  Sender: FDA-Public Use
  Company Number: US-PFIZER INC-2018000547

PATIENT
  Age: 16 Year
  Sex: Male
  Weight: 77.55 kg

DRUGS (3)
  1. IBUPROFEN. [Suspect]
     Active Substance: IBUPROFEN
     Indication: PYREXIA
     Dosage: 800 MG
  2. IBUPROFEN. [Suspect]
     Active Substance: IBUPROFEN
     Indication: COLD SWEAT
  3. IBUPROFEN. [Suspect]
     Active Substance: IBUPROFEN
     Indication: PAIN

REACTIONS (3)
  - Asthenia [Unknown]
  - Drug ineffective [Unknown]
  - Fatigue [Unknown]
